FAERS Safety Report 12952581 (Version 1)
Quarter: 2016Q4

REPORT INFORMATION
  Report Type: Spontaneous
  Country: AT (occurrence: AT)
  Receive Date: 20161117
  Receipt Date: 20161117
  Transmission Date: 20170207
  Serious: Yes (Other)
  Sender: FDA-Public Use
  Company Number: AT-PFIZER INC-2016529871

PATIENT
  Age: 75 Year
  Sex: Female

DRUGS (3)
  1. SUTENT [Suspect]
     Active Substance: SUNITINIB MALATE
     Indication: METASTATIC RENAL CELL CARCINOMA
     Dosage: 25 MG CYCLIC, TWO WEEKS TREATMENT, ONE WEEK REST
     Dates: start: 201607, end: 2016
  2. SUTENT [Suspect]
     Active Substance: SUNITINIB MALATE
     Dosage: 37.5 MG, CYCLIC, TWO WEEKS TREATMENT, ONE WEEK REST
     Dates: start: 201610, end: 2016
  3. XARELTO [Suspect]
     Active Substance: RIVAROXABAN
     Indication: METASTATIC RENAL CELL CARCINOMA
     Dosage: 15 MG, UNK
     Dates: end: 2016

REACTIONS (2)
  - Asthenia [Unknown]
  - Diarrhoea haemorrhagic [Unknown]

NARRATIVE: CASE EVENT DATE: 2016
